FAERS Safety Report 7323748-8 (Version None)
Quarter: 2011Q1

REPORT INFORMATION
  Report Type: 
  Country: None (occurrence: None)
  Receive Date: 20110301
  Receipt Date: 20110224
  Transmission Date: 20110831
  Serious: Yes (Hospitalization)
  Sender: FDA-Public Use
  Company Number: US-ELI_LILLY_AND_COMPANY-US201101005518

PATIENT
  Sex: Female

DRUGS (26)
  1. GEMCITABINE HYDROCHLORIDE [Suspect]
     Indication: PANCREATIC CARCINOMA
     Dosage: 1000 MG/M2, UNKNOWN
     Dates: start: 20100818, end: 20110126
  2. TPN ELECTROLYTES IN PLASTIC CONTAINER [Concomitant]
     Route: 042
     Dates: start: 20101203
  3. KLOR-CON [Concomitant]
     Route: 048
     Dates: start: 20101228
  4. LASIX [Concomitant]
     Route: 042
     Dates: start: 20110113, end: 20110113
  5. POTASSIUM CHLORIDE [Concomitant]
     Indication: HYPOKALAEMIA
     Route: 048
     Dates: start: 20110112, end: 20110112
  6. RED BLOOD CELLS [Concomitant]
     Indication: ANAEMIA
     Route: 042
     Dates: start: 20110113, end: 20110113
  7. ATENOLOL [Concomitant]
     Indication: PALPITATIONS
     Route: 048
     Dates: start: 19900101
  8. DARVOCET [Concomitant]
     Indication: PAIN
     Route: 048
     Dates: start: 20100601
  9. TAGAMET [Concomitant]
     Indication: ABDOMINAL PAIN
     Route: 048
     Dates: start: 20101125
  10. VANCOMYCIN [Concomitant]
     Indication: SEPSIS
     Route: 042
     Dates: start: 20110107, end: 20110114
  11. VASELINE [Concomitant]
     Indication: RASH
     Route: 061
     Dates: start: 20101123
  12. NEUPOGEN [Concomitant]
     Indication: NEUTROPENIA
     Route: 058
     Dates: start: 20110107, end: 20110107
  13. ACETAMINOPHEN [Concomitant]
     Indication: PREMEDICATION
     Route: 048
     Dates: start: 20110113, end: 20110113
  14. DIPHENHYDRAMINE [Concomitant]
     Indication: PREMEDICATION
     Route: 048
     Dates: start: 20110113, end: 20110113
  15. LASIX [Concomitant]
     Indication: OEDEMA PERIPHERAL
     Route: 048
     Dates: start: 20101228, end: 20110107
  16. PANTOPRAZOLE [Concomitant]
     Route: 042
     Dates: start: 20110108, end: 20110114
  17. DORIPENEM [Concomitant]
     Indication: SEPSIS
     Route: 042
     Dates: start: 20110107, end: 20110114
  18. VANCOMYCIN [Concomitant]
     Dates: start: 20110101
  19. PACLITAXEL [Suspect]
     Indication: PANCREATIC CARCINOMA
     Dosage: 125 MG/M2, WEEKLY (1/W)
     Dates: start: 20100818, end: 20110126
  20. DILAUDID [Concomitant]
     Indication: PAIN
     Route: 042
     Dates: start: 20110108, end: 20110114
  21. LIPIDS NOS [Concomitant]
     Route: 042
     Dates: start: 20110113, end: 20110113
  22. MYLANTA [Concomitant]
     Indication: ABDOMINAL PAIN
     Route: 048
     Dates: start: 20101125
  23. ATIVAN [Concomitant]
     Indication: ANXIETY
     Route: 048
     Dates: start: 20040101
  24. PROMETHAZINE [Concomitant]
     Indication: NAUSEA
     Route: 048
     Dates: start: 20100701
  25. PROMETHAZINE [Concomitant]
     Route: 042
     Dates: start: 20110108, end: 20110114
  26. POTASSIUM CHLORIDE [Concomitant]
     Route: 042
     Dates: start: 20110114, end: 20110114

REACTIONS (1)
  - PLEURAL EFFUSION [None]
